FAERS Safety Report 14648064 (Version 1)
Quarter: 2018Q1

REPORT INFORMATION
  Report Type: Spontaneous
  Country: ES (occurrence: ES)
  Receive Date: 20180316
  Receipt Date: 20180316
  Transmission Date: 20180509
  Serious: Yes (Other)
  Sender: FDA-Public Use
  Company Number: ES-TEVA-2018-ES-868215

PATIENT
  Age: 92 Year
  Sex: Female

DRUGS (7)
  1. ACENOCUMAROL (220A) [Interacting]
     Active Substance: ACENOCOUMAROL
     Indication: ATRIAL FIBRILLATION
     Dosage: 0.25 MG EVERY 24 HOURS WITH SUBSEQUENT INCREASE TO 0.5 MG EVERY 24 HOURS ON 01/26/2017
     Route: 048
     Dates: start: 20170125, end: 20170127
  2. DIGOXINA (770A) [Concomitant]
     Dosage: 0,125 MG EVERY 24 HOURS
     Dates: start: 20170126, end: 20170131
  3. PANTOPRAZOL (7275A) [Suspect]
     Active Substance: PANTOPRAZOLE
     Dosage: 40 MG EVERY 24 HOURS WITH SUBSEQUENT REDUCTION OF THE DOSE TO 20 MG EVERY 24 HOURS ON 01/26/2017
     Dates: start: 20170125, end: 20170216
  4. AMOXICILLIN W/CLAVULANIC ACID [Interacting]
     Active Substance: AMOXICILLIN\CLAVULANIC ACID
     Indication: PNEUMONIA
     Dosage: 1 GR EVERY 8 HOURS WITH SUBSEQUENT DOSE REDUCTION TO 875 GR EVERY 8 HOURS ON 01/30/2017
     Dates: start: 20170125, end: 20170208
  5. AMBROXOL (453A) [Concomitant]
     Dosage: 15 MG EVERY 8 HOURS
     Dates: start: 20170125, end: 20170217
  6. PARACETAMOL (12A) [Concomitant]
     Active Substance: ACETAMINOPHEN
     Dosage: 1 GR EVERY 8 HOURS
     Dates: start: 20170125, end: 20170218
  7. LORAZEPAM (1864A) [Concomitant]
     Dosage: 0.5 MG EVERY 24 HOURS WITH INCREASE ON 01/26/2017 AT 1 MG EVERY 24 HOURS
     Dates: start: 20170125, end: 20170217

REACTIONS (2)
  - Hypocoagulable state [Recovered/Resolved]
  - Drug interaction [Unknown]

NARRATIVE: CASE EVENT DATE: 20170127
